FAERS Safety Report 6954766-7 (Version None)
Quarter: 2010Q3

REPORT INFORMATION
  Report Type: 
  Country: None (occurrence: None)
  Receive Date: 20100830
  Receipt Date: 20100820
  Transmission Date: 20110219
  Serious: Yes (Hospitalization, Other)
  Sender: FDA-Public Use
  Company Number: US-BIOGENIDEC-2010BI029213

PATIENT
  Age: 35 Year
  Sex: Female

DRUGS (2)
  1. AVONEX [Suspect]
     Indication: MULTIPLE SCLEROSIS
     Route: 030
     Dates: start: 20040103, end: 20051215
  2. AVONEX [Suspect]
     Route: 030
     Dates: start: 20080101, end: 20091201

REACTIONS (3)
  - ABORTION SPONTANEOUS [None]
  - HYPERTENSION [None]
  - PRE-ECLAMPSIA [None]
